FAERS Safety Report 5164680-8 (Version None)
Quarter: 2006Q4

REPORT INFORMATION
  Report Type: 
  Country: None (occurrence: None)
  Receive Date: 20061205
  Receipt Date: 20061201
  Transmission Date: 20070319
  Serious: Yes (Death)
  Sender: FDA-Public Use
  Company Number: BR-GLAXOSMITHKLINE-A0630107A

PATIENT
  Age: 69 Year
  Sex: Male

DRUGS (11)
  1. SAL DE FRUTA ENO [Suspect]
     Indication: DYSPEPSIA
     Route: 065
  2. GLUCOFORMIN [Concomitant]
  3. RENITEC [Concomitant]
  4. ACETYLSALICYLIC ACID SRT [Concomitant]
  5. CARDIZEM [Concomitant]
  6. CEDUR RETARD [Concomitant]
  7. DAONIL [Concomitant]
  8. OMEPRAZOLE [Concomitant]
  9. ZOCOR [Concomitant]
  10. ANGIPRESS [Concomitant]
  11. SLO-K [Concomitant]

REACTIONS (2)
  - CONDITION AGGRAVATED [None]
  - DISEASE PROGRESSION [None]
